FAERS Safety Report 14931344 (Version 1)
Quarter: 2018Q2

REPORT INFORMATION
  Report Type: Spontaneous
  Country: FR (occurrence: FR)
  Receive Date: 20180524
  Receipt Date: 20180524
  Transmission Date: 20180711
  Serious: Yes (Other)
  Sender: FDA-Public Use
  Company Number: FR-MERCK KGAA-2048365

PATIENT
  Age: 63 Year
  Sex: Female

DRUGS (1)
  1. NOVOTHYROX [Suspect]
     Active Substance: LEVOTHYROXINE SODIUM
     Indication: PRODUCT USED FOR UNKNOWN INDICATION

REACTIONS (11)
  - Mood swings [None]
  - Fatigue [None]
  - Disturbance in attention [None]
  - Road traffic accident [None]
  - Spinal fracture [None]
  - Insomnia [None]
  - Pain [None]
  - Gait disturbance [None]
  - Dizziness [None]
  - Impaired driving ability [None]
  - Irritability [None]

NARRATIVE: CASE EVENT DATE: 20170830
